FAERS Safety Report 10571531 (Version 1)
Quarter: 2014Q4

REPORT INFORMATION
  Report Type: Spontaneous
  Country: US (occurrence: US)
  Receive Date: 20141107
  Receipt Date: 20141107
  Transmission Date: 20150529
  Serious: Yes (Hospitalization, Other)
  Sender: FDA-Public Use
  Company Number: US-ABBVIE-14P-163-1302197-00

PATIENT
  Sex: Male

DRUGS (2)
  1. AXIRON [Suspect]
     Active Substance: TESTOSTERONE
     Indication: BLOOD TESTOSTERONE DECREASED
     Route: 065
     Dates: start: 201211, end: 201312
  2. ANDROGEL [Suspect]
     Active Substance: TESTOSTERONE
     Indication: BLOOD TESTOSTERONE DECREASED
     Route: 062
     Dates: start: 20120507

REACTIONS (12)
  - Injury [Unknown]
  - Anhedonia [Unknown]
  - Pain [Unknown]
  - Fear [Unknown]
  - Economic problem [Unknown]
  - Social problem [Unknown]
  - Emotional distress [Unknown]
  - Cerebrovascular accident [Unknown]
  - Disability [Unknown]
  - Anxiety [Unknown]
  - Impaired work ability [Unknown]
  - Cardiac disorder [Unknown]

NARRATIVE: CASE EVENT DATE: 201206
